FAERS Safety Report 5263931-9 (Version None)
Quarter: 2007Q1

REPORT INFORMATION
  Report Type: 
  Country: None (occurrence: None)
  Receive Date: 20070313
  Receipt Date: 20070302
  Transmission Date: 20070707
  Serious: Yes (Hospitalization)
  Sender: FDA-Public Use
  Company Number: CH-BRISTOL-MYERS SQUIBB COMPANY-13708813

PATIENT
  Age: 83 Year
  Sex: Male

DRUGS (8)
  1. GLUCOVANCE [Suspect]
     Indication: DIABETES MELLITUS
     Route: 048
     Dates: start: 20061201, end: 20070108
  2. INFLUENZA VACCINE [Suspect]
     Route: 051
     Dates: start: 20061101, end: 20061101
  3. BRONCHO-VAXOM [Suspect]
     Route: 048
     Dates: start: 20061101, end: 20070101
  4. SINTROM [Concomitant]
     Indication: ATRIAL FIBRILLATION
     Route: 048
  5. BELOC [Concomitant]
     Route: 048
  6. TRIATEC [Concomitant]
     Route: 048
  7. DIGOXIN [Concomitant]
     Route: 048
  8. MAGNESIUM CITRATE [Concomitant]
     Route: 048

REACTIONS (2)
  - EPISTAXIS [None]
  - THROMBOCYTOPENIC PURPURA [None]
